FAERS Safety Report 9217467 (Version 3)
Quarter: 2013Q3

REPORT INFORMATION
  Report Type: Report from Study
  Country: US (occurrence: US)
  Receive Date: 20130408
  Receipt Date: 20130926
  Transmission Date: 20140515
  Serious: Yes (Hospitalization)
  Sender: FDA-Public Use
  Company Number: US-ALEXION-A201300647

PATIENT
  Age: 44 Year
  Sex: Female
  Weight: 71.66 kg

DRUGS (1)
  1. SOLIRIS [Suspect]
     Indication: HAEMOLYTIC URAEMIC SYNDROME
     Dosage: 900 MG, QW
     Route: 042
     Dates: start: 20121115, end: 20121206

REACTIONS (2)
  - Splenectomy [Unknown]
  - Drug ineffective [Unknown]
